FAERS Safety Report 7993948-2 (Version None)
Quarter: 2011Q4

REPORT INFORMATION
  Report Type: 
  Country: None (occurrence: None)
  Receive Date: 20111215
  Receipt Date: 20111129
  Transmission Date: 20120403
  Serious: Yes (Other)
  Sender: FDA-Public Use
  Company Number: FK201102885

PATIENT
  Age: 28 Year
  Sex: Male

DRUGS (6)
  1. CYTARABINE [Suspect]
     Indication: EPSTEIN-BARR VIRUS INFECTION
  2. VINCRISTINE [Suspect]
     Indication: EPSTEIN-BARR VIRUS INFECTION
     Dosage: 1.4 MG/M2
  3. DOXORUBICIN HCL [Suspect]
     Indication: EPSTEIN-BARR VIRUS INFECTION
     Dosage: 50 MG/M2
  4. CYCLOPHOSPHAMIDE [Suspect]
     Indication: EPSTEIN-BARR VIRUS INFECTION
     Dosage: 750 MG/M2
  5. CYCLOSPORINE [Suspect]
     Indication: EPSTEIN-BARR VIRUS INFECTION
  6. PREDNISOLONE [Suspect]
     Indication: EPSTEIN-BARR VIRUS INFECTION

REACTIONS (5)
  - PERICARDIAL EFFUSION [None]
  - PYREXIA [None]
  - NEUROPATHY PERIPHERAL [None]
  - NEUTROPENIA [None]
  - BONE MARROW TRANSPLANT [None]
